FAERS Safety Report 12739575 (Version 1)
Quarter: 2016Q3

REPORT INFORMATION
  Report Type: Report from Study
  Country: BR (occurrence: BR)
  Receive Date: 20160913
  Receipt Date: 20160913
  Transmission Date: 20161109
  Serious: Yes (Death, Hospitalization)
  Sender: FDA-Public Use
  Company Number: BR-IPCA LABORATORIES LIMITED-IPC201609-000748

PATIENT
  Age: 20 Year
  Sex: Female

DRUGS (3)
  1. CHLOROQUINE PHOSPHATE. [Suspect]
     Active Substance: CHLOROQUINE PHOSPHATE
     Indication: SYSTEMIC LUPUS ERYTHEMATOSUS
  2. PREDNISONE. [Suspect]
     Active Substance: PREDNISONE
     Indication: SYSTEMIC LUPUS ERYTHEMATOSUS
  3. AZATHIOPRINE. [Suspect]
     Active Substance: AZATHIOPRINE
     Indication: SYSTEMIC LUPUS ERYTHEMATOSUS

REACTIONS (8)
  - Peritonitis [Unknown]
  - Pneumoperitoneum [Unknown]
  - Sepsis [Unknown]
  - Coma [Unknown]
  - Papilloedema [Unknown]
  - Pneumonia [Unknown]
  - Disseminated tuberculosis [Fatal]
  - Brain herniation [Fatal]
